FAERS Safety Report 8096182 (Version 3)
Quarter: 2012Q4

REPORT INFORMATION
  Report Type: 
  Country: US (occurrence: US)
  Receive Date: 20110818
  Receipt Date: 20121203
  Transmission Date: 20130627
  Serious: Yes (Other)
  Sender: FDA-Public Use
  Company Number: PHEH2011US00877

PATIENT
  Age: 53 Year
  Sex: Female

DRUGS (21)
  1. TASIGNA [Suspect]
     Indication: CHRONIC MYELOID LEUKAEMIA
     Dosage: 300 mg, BID
     Route: 048
     Dates: start: 20110415
  2. TASIGNA [Suspect]
     Dosage: 300 mg, QD
     Route: 048
     Dates: start: 20110510
  3. TASIGNA [Suspect]
     Dosage: 300 mg, AM
     Route: 048
     Dates: start: 20110519
  4. TASIGNA [Suspect]
     Dosage: 150 mg, PM
     Route: 048
     Dates: start: 20110519
  5. TASIGNA [Suspect]
     Dosage: 150 mg, BID
     Route: 048
  6. MULTI-VITAMINS [Concomitant]
  7. KCL [Concomitant]
  8. HYDROCHLOROTHIAZIDE [Concomitant]
  9. VIT B-COMPLEX [Concomitant]
     Dosage: 100 mg,
  10. FOLIC ACID [Concomitant]
  11. ESTER-C [Concomitant]
  12. CALCIUM [Concomitant]
  13. ALDACTONE [Concomitant]
  14. ADVAIR DISKUS [Concomitant]
  15. AVANDAMET [Concomitant]
  16. SULFONYL UREA DERIVATIVES [Concomitant]
  17. METFORMIN [Concomitant]
  18. INSULIN [Concomitant]
  19. ALPHA GLUCOSIDASE INHIBITORS [Concomitant]
  20. REPAGLINIDE [Concomitant]
  21. TROGLITAZONE [Concomitant]

REACTIONS (4)
  - Drug-induced liver injury [Unknown]
  - Transaminases increased [Recovering/Resolving]
  - Nausea [Unknown]
  - Drug intolerance [Recovered/Resolved]
